FAERS Safety Report 7196672-1 (Version None)
Quarter: 2010Q4

REPORT INFORMATION
  Report Type: 
  Country: None (occurrence: None)
  Receive Date: 20101223
  Receipt Date: 20101029
  Transmission Date: 20110411
  Serious: No
  Sender: FDA-Public Use
  Company Number: US-AMGEN-USASP2010002785

PATIENT

DRUGS (1)
  1. ENBREL [Suspect]
     Indication: PROSTATIC SPECIFIC ANTIGEN
     Dosage: 50 MG, QWK
     Dates: start: 20030701

REACTIONS (3)
  - ARTHRALGIA [None]
  - DEFORMITY [None]
  - MYALGIA [None]
